FAERS Safety Report 4910735-X (Version None)
Quarter: 2006Q1

REPORT INFORMATION
  Report Type: 
  Country: None (occurrence: None)
  Receive Date: 20060209
  Receipt Date: 20060209
  Transmission Date: 20060701
  Serious: Yes (Death, Hospitalization)
  Sender: FDA-Public Use
  Company Number: None

PATIENT
  Sex: Female
  Weight: 84.32 kg

DRUGS (11)
  1. IRINOTECAN HCL [Suspect]
     Indication: GLIOBLASTOMA MULTIFORME
     Dosage: 2406 MG
     Dates: start: 20050919, end: 20060123
  2. CAMPTOSAR [Suspect]
     Dosage: 1350 MG
     Dates: start: 20050919, end: 20060123
  3. DEXAMETHASONE SODIUM PHOSPHATE [Concomitant]
  4. DIFLUCAN [Concomitant]
  5. HEPARIN [Concomitant]
  6. KEPPRA [Concomitant]
  7. LEXAPRO [Concomitant]
  8. SYNTHROID [Concomitant]
  9. TYLENOL [Concomitant]
  10. ZOFRAN [Concomitant]
  11. COUMADIN [Concomitant]

REACTIONS (9)
  - BACTERAEMIA [None]
  - BODY TEMPERATURE INCREASED [None]
  - CONFUSIONAL STATE [None]
  - CUSHINGOID [None]
  - DYSPNOEA [None]
  - HYPOTENSION [None]
  - HYPOXIA [None]
  - LUNG INFILTRATION [None]
  - PULMONARY EMBOLISM [None]
